FAERS Safety Report 21765831 (Version 1)
Quarter: 2022Q4

REPORT INFORMATION
  Report Type: Spontaneous
  Country: AR (occurrence: AR)
  Receive Date: 20221222
  Receipt Date: 20221222
  Transmission Date: 20230112
  Serious: Yes (Other)
  Sender: FDA-Public Use
  Company Number: AR-PFIZER INC-PV202200126165

PATIENT
  Age: 77 Year
  Sex: Female

DRUGS (1)
  1. SOMAVERT [Suspect]
     Active Substance: PEGVISOMANT
     Indication: Acromegaly
     Dosage: 15 MG 7 TIMES PER WEEK
     Dates: start: 20111201

REACTIONS (7)
  - Peripheral swelling [Unknown]
  - Pain in extremity [Unknown]
  - Loss of personal independence in daily activities [Unknown]
  - Osteoarthritis [Unknown]
  - Mobility decreased [Unknown]
  - Pain [Unknown]
  - Drug ineffective [Unknown]

NARRATIVE: CASE EVENT DATE: 20220101
